FAERS Safety Report 23857628 (Version 1)
Quarter: 2024Q2

REPORT INFORMATION
  Report Type: Spontaneous
  Country: US (occurrence: None)
  Receive Date: 20240514
  Receipt Date: 20240514
  Transmission Date: 20240716
  Serious: Yes (Hospitalization)
  Sender: FDA-Public Use
  Company Number: None

PATIENT
  Age: 40 Year
  Sex: Male
  Weight: 93 kg

DRUGS (1)
  1. BUPROPION HCL ER (XL) [Suspect]
     Active Substance: BUPROPION HYDROCHLORIDE
     Indication: Depression
     Dosage: OTHER FREQUENCY : AM;?
     Route: 048
     Dates: start: 20231229, end: 20240126

REACTIONS (2)
  - Psychotic disorder [None]
  - Persecutory delusion [None]

NARRATIVE: CASE EVENT DATE: 20240126
